FAERS Safety Report 12432706 (Version 2)
Quarter: 2016Q2

REPORT INFORMATION
  Report Type: Spontaneous
  Country: US (occurrence: US)
  Receive Date: 20160603
  Receipt Date: 20160603
  Transmission Date: 20160815
  Serious: Yes (Other)
  Sender: FDA-Public Use
  Company Number: US-BAYER-2016-107763

PATIENT

DRUGS (1)
  1. MIRENA [Suspect]
     Active Substance: LEVONORGESTREL
     Dosage: 20 MCG/24HR, CONT
     Route: 064

REACTIONS (6)
  - Cerebral palsy [None]
  - Developmental delay [None]
  - Premature baby [None]
  - Periventricular leukomalacia [None]
  - Congenital visual acuity reduced [None]
  - Congenital hearing disorder [None]
